FAERS Safety Report 5289886-9 (Version None)
Quarter: 2007Q2

REPORT INFORMATION
  Report Type: 
  Country: None (occurrence: None)
  Receive Date: 20070406
  Receipt Date: 20070402
  Transmission Date: 20071010
  Serious: Yes (Hospitalization, Other)
  Sender: FDA-Public Use
  Company Number: CH-PFIZER INC-2006135850

PATIENT
  Sex: Female
  Weight: 47 kg

DRUGS (12)
  1. VFEND [Suspect]
     Route: 042
  2. CANCIDAS [Suspect]
     Route: 042
  3. NOPIL [Concomitant]
  4. MERCAPTOPURINE [Concomitant]
  5. MEROPENEM [Concomitant]
     Route: 042
  6. TARGOCID [Concomitant]
  7. METHOTREXATE [Concomitant]
  8. INDOCID [Concomitant]
  9. CLEXANE [Concomitant]
  10. OMEPRAZOLE [Concomitant]
  11. TEICOPLANIN [Concomitant]
  12. AMPHOTERICIN B [Concomitant]

REACTIONS (3)
  - ARTHRITIS [None]
  - EXTRASKELETAL OSSIFICATION [None]
  - POLYSEROSITIS [None]
